FAERS Safety Report 7434556-1 (Version None)
Quarter: 2011Q2

REPORT INFORMATION
  Report Type: 
  Country: None (occurrence: None)
  Receive Date: 20110414
  Receipt Date: 20110331
  Transmission Date: 20111010
  Serious: Yes (Hospitalization)
  Sender: FDA-Public Use
  Company Number: 015714

PATIENT
  Sex: Male

DRUGS (12)
  1. MELOXICAM [Concomitant]
  2. METHOTREXATE [Concomitant]
  3. LANSOPRAZOLE [Concomitant]
  4. CILEXETIL [Concomitant]
  5. RISEDRONATE SODIUM [Concomitant]
  6. CIMZIA [Suspect]
     Indication: RHEUMATOID ARTHRITIS
     Dosage: (400 MG  1X/2 WEEKS, C87041 SUBCUTANEOUS), (200 MG 1X/2 WEEKS SUBCUTANEOUS), (200 MG 1X/2 WEEKS SUB
     Route: 058
     Dates: start: 20100722
  7. CIMZIA [Suspect]
     Indication: RHEUMATOID ARTHRITIS
     Dosage: (400 MG  1X/2 WEEKS, C87041 SUBCUTANEOUS), (200 MG 1X/2 WEEKS SUBCUTANEOUS), (200 MG 1X/2 WEEKS SUB
     Route: 058
     Dates: start: 20100304
  8. CIMZIA [Suspect]
     Indication: RHEUMATOID ARTHRITIS
     Dosage: (400 MG  1X/2 WEEKS, C87041 SUBCUTANEOUS), (200 MG 1X/2 WEEKS SUBCUTANEOUS), (200 MG 1X/2 WEEKS SUB
     Route: 058
     Dates: start: 20091112, end: 20100218
  9. CANDESARTAN [Concomitant]
  10. ITOPRIDE HYDROCHLORIDE [Concomitant]
  11. AMLODIPINE BESILATE [Concomitant]
  12. KETOPROFEN [Concomitant]

REACTIONS (5)
  - FALL [None]
  - FOOT DEFORMITY [None]
  - BRONCHITIS [None]
  - IMMUNODEFICIENCY [None]
  - SPINAL COMPRESSION FRACTURE [None]
